FAERS Safety Report 4456643-2 (Version None)
Quarter: 2004Q3

REPORT INFORMATION
  Report Type: 
  Country: None (occurrence: None)
  Receive Date: 20040921
  Receipt Date: 20040913
  Transmission Date: 20050211
  Serious: Yes (Other)
  Sender: FDA-Public Use
  Company Number: HQWYE040715SEP04

PATIENT
  Sex: Female

DRUGS (1)
  1. ADVIL MIGRAINE LIQUI-GELS [Suspect]
     Dates: start: 20040909

REACTIONS (2)
  - HYPERSENSITIVITY [None]
  - THINKING ABNORMAL [None]
